FAERS Safety Report 7208257-9 (Version None)
Quarter: 2011Q1

REPORT INFORMATION
  Report Type: 
  Country: None (occurrence: None)
  Receive Date: 20110104
  Receipt Date: 20101223
  Transmission Date: 20110831
  Serious: Yes (Death, Hospitalization)
  Sender: FDA-Public Use
  Company Number: CA-JNJFOC-20101208839

PATIENT
  Age: 21 Year
  Sex: Male

DRUGS (2)
  1. REMICADE [Suspect]
     Indication: CROHN'S DISEASE
     Dosage: EVERY 6-7 WEEKS
     Route: 042
  2. PURINETHOL [Concomitant]
     Indication: CROHN'S DISEASE

REACTIONS (11)
  - LUNG ABSCESS [None]
  - HEPATOSPLENIC T-CELL LYMPHOMA [None]
  - PULMONARY MYCOSIS [None]
  - EPSTEIN-BARR VIRUS INFECTION [None]
  - ESCHERICHIA SEPSIS [None]
  - SEPTIC SHOCK [None]
  - MULTI-ORGAN FAILURE [None]
  - HISTIOCYTOSIS HAEMATOPHAGIC [None]
  - SUPERINFECTION [None]
  - KLEBSIELLA BACTERAEMIA [None]
  - EMPYEMA [None]
